FAERS Safety Report 5498493-4 (Version None)
Quarter: 2007Q4

REPORT INFORMATION
  Report Type: 
  Country: None (occurrence: None)
  Receive Date: 20071024
  Receipt Date: 20071024
  Transmission Date: 20080405
  Serious: Yes (Other)
  Sender: FDA-Public Use
  Company Number: None

PATIENT
  Sex: Male

DRUGS (4)
  1. ENBREL [Suspect]
     Indication: JUVENILE ARTHRITIS
     Dosage: 50MG SQ 1X WEEK
     Route: 058
  2. CELEBREX [Concomitant]
  3. PREVACID [Concomitant]
  4. ULTRACET [Concomitant]

REACTIONS (1)
  - PERIRECTAL ABSCESS [None]
